FAERS Safety Report 20193848 (Version 1)
Quarter: 2021Q4

REPORT INFORMATION
  Report Type: Report from Study
  Country: DE (occurrence: DE)
  Receive Date: 20211216
  Receipt Date: 20211216
  Transmission Date: 20220303
  Serious: Yes (Hospitalization)
  Sender: FDA-Public Use
  Company Number: DE-Accord-244108

PATIENT
  Sex: Female
  Weight: 85 kg

DRUGS (3)
  1. PEGFILGRASTIM [Suspect]
     Active Substance: PEGFILGRASTIM
     Indication: Product used for unknown indication
     Dosage: STRENGTH: 6MG, PRE FILLED PEN
     Route: 058
     Dates: start: 20211007, end: 20211007
  2. EPIRUBICIN [Suspect]
     Active Substance: EPIRUBICIN
     Indication: Product used for unknown indication
     Dosage: 171.9 MILLIGRAM
     Route: 042
     Dates: start: 20211006, end: 20211006
  3. CYCLOPHOSPHAMIDE [Suspect]
     Active Substance: CYCLOPHOSPHAMIDE
     Indication: Product used for unknown indication
     Dosage: 1146 MILLIGRAM
     Route: 042
     Dates: start: 20211006, end: 20211006

REACTIONS (1)
  - Febrile neutropenia [Recovered/Resolved]

NARRATIVE: CASE EVENT DATE: 20211013
